FAERS Safety Report 18043801 (Version 1)
Quarter: 2020Q3

REPORT INFORMATION
  Report Type: Spontaneous
  Country: US (occurrence: US)
  Receive Date: 20200717
  Receipt Date: 20200717
  Transmission Date: 20201103
  Serious: Yes (Hospitalization)
  Sender: FDA-Public Use
  Company Number: None

PATIENT
  Age: 59 Year
  Sex: Female

DRUGS (1)
  1. AMBRISENTAN 10MG TABLETS 30/BO: 10MG [Suspect]
     Active Substance: AMBRISENTAN
     Indication: PULMONARY ARTERIAL HYPERTENSION
     Route: 048
     Dates: start: 20180928

REACTIONS (7)
  - Dyspnoea [None]
  - Pneumonia [None]
  - Orthopnoea [None]
  - Cough [None]
  - Cardiac failure congestive [None]
  - Pain in extremity [None]
  - Oedema [None]

NARRATIVE: CASE EVENT DATE: 20200713
